FAERS Safety Report 16148634 (Version 5)
Quarter: 2019Q3

REPORT INFORMATION
  Report Type: Report from Study
  Country: US (occurrence: US)
  Receive Date: 20190402
  Receipt Date: 20190712
  Transmission Date: 20191004
  Serious: Yes (Hospitalization)
  Sender: FDA-Public Use
  Company Number: PHEH2019US013886

PATIENT
  Sex: Female

DRUGS (1)
  1. COSENTYX [Suspect]
     Active Substance: SECUKINUMAB
     Indication: PSORIASIS
     Dosage: 300 MG, QMO
     Route: 058
     Dates: start: 20180716

REACTIONS (5)
  - Conjunctivitis [Unknown]
  - Chronic obstructive pulmonary disease [Recovering/Resolving]
  - Skin swelling [Unknown]
  - Psoriasis [Unknown]
  - Drug ineffective [Unknown]
